FAERS Safety Report 9848975 (Version 2)
Quarter: 2014Q1

REPORT INFORMATION
  Report Type: Report from Study
  Country: DE (occurrence: DE)
  Receive Date: 20140128
  Receipt Date: 20140128
  Transmission Date: 20141002
  Serious: Yes (Life-Threatening, Hospitalization)
  Sender: FDA-Public Use
  Company Number: DE-SHIRE-CQT2-2007-00015

PATIENT
  Sex: 0

DRUGS (20)
  1. 422 (ANAGRELIDE) [Suspect]
     Indication: ESSENTIAL THROMBOCYTHAEMIA
     Dosage: 0.5 MG, 2X/DAY:BID
     Route: 048
     Dates: start: 20060202, end: 20060315
  2. 422 (ANAGRELIDE) [Suspect]
     Dosage: 0.5 MG, 4X/DAY:QID
     Route: 048
     Dates: start: 20060316, end: 20061122
  3. HYDROXYUREA [Suspect]
     Indication: ESSENTIAL THROMBOCYTHAEMIA
     Dosage: 500 MG, 2X/DAY:BID
     Route: 048
     Dates: start: 20010522, end: 20011219
  4. HYDROXYUREA [Suspect]
     Dosage: 500 MG, 3X/DAY:TID
     Route: 048
     Dates: start: 20061123, end: 200612
  5. HYDROXYUREA [Suspect]
     Dosage: 500 MG OR 1000 MG ALTERNATING DAILY
     Route: 048
     Dates: start: 20011220, end: 20030922
  6. HYDROXYUREA [Suspect]
     Dosage: 500 MG, 2X/DAY:BID
     Route: 048
     Dates: start: 20070315, end: 20070521
  7. ACETYLSALICYLIC ACID [Suspect]
     Indication: ESSENTIAL THROMBOCYTHAEMIA
     Dosage: 100 MG, 1X/DAY:QD
     Route: 048
     Dates: start: 2001, end: 200612
  8. ACETYLSALICYLIC ACID [Suspect]
     Dosage: 300 MG, 1X/DAY:QD
     Route: 048
     Dates: start: 20070103
  9. BUSULFAN [Suspect]
     Indication: ESSENTIAL THROMBOCYTHAEMIA
     Dosage: 0.5 - 3.0 MG PER DAY, AS REQ^D
     Route: 048
     Dates: start: 20030923, end: 20041004
  10. BUSULFAN [Suspect]
     Dosage: 0.5 MG, 1X/DAY:QD
     Route: 048
     Dates: start: 20070522, end: 20080317
  11. NOVALGIN                           /00039501/ [Concomitant]
     Indication: PLEURITIC PAIN
     Dosage: 20 GTT, 4X/DAY:QID
     Route: 048
     Dates: start: 20060804
  12. ESIDRIX [Concomitant]
     Indication: HYPERTENSION
     Dosage: 25 MG, 1X/DAY:QD
     Route: 048
     Dates: start: 20060528
  13. ESIDRIX [Concomitant]
     Indication: ATRIAL FIBRILLATION
  14. VERAPAMIL [Concomitant]
     Indication: CORONARY ARTERY DISEASE
     Dosage: 80 MG, 3X/DAY:TID
     Route: 048
  15. DELIX                              /00885601/ [Concomitant]
     Indication: CORONARY ARTERY DISEASE
     Dosage: 2.5 MG, 1X/DAY:QD
     Route: 048
  16. FUROSEMID                          /00032601/ [Concomitant]
     Indication: DIURETIC THERAPY
     Dosage: 20 MG, 1X/DAY:QD
     Route: 048
  17. SPIRIVA [Concomitant]
     Indication: CHRONIC OBSTRUCTIVE PULMONARY DISEASE
     Dosage: 18 UG, 1X/DAY:QD
     Route: 048
  18. SEREVENT [Concomitant]
     Indication: CHRONIC OBSTRUCTIVE PULMONARY DISEASE
     Dosage: 12.5 MG, 2X/DAY:BID
     Route: 055
  19. VIANI [Concomitant]
     Indication: CHRONIC OBSTRUCTIVE PULMONARY DISEASE
     Dosage: 150 UG, 2X/DAY:BID
     Route: 055
  20. CLINDAMYCIN [Concomitant]
     Indication: GOUTY TOPHUS
     Dosage: 300 MG, 4X/DAY:QID
     Route: 048
     Dates: start: 20061119, end: 20061203

REACTIONS (3)
  - Leukopenia [Recovered/Resolved]
  - Thrombocytopenia [Recovered/Resolved]
  - Anaemia [Recovered/Resolved]
